FAERS Safety Report 19986454 (Version 1)
Quarter: 2021Q4

REPORT INFORMATION
  Report Type: Spontaneous
  Country: US (occurrence: US)
  Receive Date: 20211022
  Receipt Date: 20211022
  Transmission Date: 20220304
  Serious: No
  Sender: FDA-Public Use
  Company Number: US-ANTARES PHARMA, INC.-2021-SPO-TX-0423

PATIENT

DRUGS (2)
  1. XYOSTED [Suspect]
     Active Substance: TESTOSTERONE ENANTHATE
     Indication: Fatigue
     Dosage: UNK, UNKNOWN
     Route: 058
     Dates: start: 2020
  2. XYOSTED [Suspect]
     Active Substance: TESTOSTERONE ENANTHATE
     Indication: Product use in unapproved indication

REACTIONS (3)
  - Injection site bruising [Unknown]
  - Injection site pain [Not Recovered/Not Resolved]
  - Product use in unapproved indication [Unknown]

NARRATIVE: CASE EVENT DATE: 20200101
